FAERS Safety Report 7735104-9 (Version None)
Quarter: 2011Q3

REPORT INFORMATION
  Report Type: 
  Country: None (occurrence: None)
  Receive Date: 20110907
  Receipt Date: 20110826
  Transmission Date: 20111222
  Serious: Yes (Other)
  Sender: FDA-Public Use
  Company Number: JP-ABBOTT-10P-087-0685049-00

PATIENT
  Sex: Male
  Weight: 48.9 kg

DRUGS (12)
  1. METHOTREXATE [Concomitant]
     Route: 048
     Dates: start: 20081031, end: 20100729
  2. LOXOPROFEN SODIUM HYDRATE [Concomitant]
     Dates: start: 20090626, end: 20100812
  3. FOLIC ACID [Concomitant]
     Indication: ADVERSE REACTION
     Route: 048
     Dates: start: 20090529, end: 20100805
  4. METHOTREXATE [Concomitant]
     Indication: RHEUMATOID ARTHRITIS
     Route: 048
     Dates: start: 20081015, end: 20081030
  5. LANSOPRAZOLE [Concomitant]
     Indication: PROPHYLAXIS AGAINST GASTROINTESTINAL ULCER
     Dosage: 15 MG
     Dates: start: 20100827
  6. ISONIAZID [Concomitant]
     Indication: ANTIBIOTIC PROPHYLAXIS
     Route: 048
     Dates: start: 20090417, end: 20100107
  7. FOLIC ACID [Concomitant]
     Indication: PROPHYLAXIS
     Route: 048
     Dates: start: 20090227, end: 20090528
  8. TEPRENONE [Concomitant]
     Indication: PROPHYLAXIS AGAINST GASTROINTESTINAL ULCER
     Route: 048
     Dates: start: 20081015, end: 20090625
  9. HUMIRA [Suspect]
     Indication: RHEUMATOID ARTHRITIS
     Route: 058
     Dates: start: 20090501, end: 20100716
  10. FOLIC ACID [Concomitant]
     Route: 048
     Dates: start: 20100806, end: 20100813
  11. LOXOPROFEN SODIUM HYDRATE [Concomitant]
     Indication: RHEUMATOID ARTHRITIS
     Dates: start: 20081015, end: 20090625
  12. TEPRENONE [Concomitant]
     Dates: start: 20090626, end: 20100812

REACTIONS (4)
  - COMPUTERISED TOMOGRAM THORAX ABNORMAL [None]
  - LYMPHADENOPATHY [None]
  - HEPATIC FUNCTION ABNORMAL [None]
  - BONE TUBERCULOSIS [None]
